FAERS Safety Report 6578828-1 (Version None)
Quarter: 2010Q1

REPORT INFORMATION
  Report Type: 
  Country: None (occurrence: None)
  Receive Date: 20100202
  Receipt Date: 20100120
  Transmission Date: 20100710
  Serious: Yes (Life-Threatening, Hospitalization)
  Sender: FDA-Public Use
  Company Number: 10-PDX10-01071

PATIENT
  Age: 59 Year
  Sex: Female

DRUGS (1)
  1. FOLOTYN [Suspect]
     Indication: MYCOSIS FUNGOIDES
     Dosage: 60 MG (60 MG)
     Dates: start: 20100107

REACTIONS (4)
  - MUCOSAL INFLAMMATION [None]
  - NEUTROPENIA [None]
  - RECALL PHENOMENON [None]
  - TOXIC EPIDERMAL NECROLYSIS [None]
